FAERS Safety Report 9553332 (Version 1)
Quarter: 2013Q3

REPORT INFORMATION
  Report Type: Spontaneous
  Country: US (occurrence: None)
  Receive Date: 20130913
  Receipt Date: 20130913
  Transmission Date: 20140515
  Serious: Yes (Other)
  Sender: FDA-Public Use
  Company Number: 1000038733

PATIENT
  Age: 42 Year
  Sex: Male

DRUGS (4)
  1. CELEXA [Suspect]
     Indication: DEPRESSION
     Route: 048
  2. LORATIDINE [Suspect]
     Indication: NASAL DRYNESS
     Route: 048
     Dates: start: 20120907
  3. CLARITIN (LORATADINE) [Suspect]
     Indication: NASAL DRYNESS
     Route: 048
     Dates: start: 201207, end: 2012
  4. DILANTIN [Suspect]
     Indication: CONVULSION
     Route: 048
     Dates: start: 201207

REACTIONS (3)
  - Convulsion [None]
  - Dizziness [None]
  - Lethargy [None]
